FAERS Safety Report 19064755 (Version 6)
Quarter: 2021Q3

REPORT INFORMATION
  Report Type: Report from Study
  Country: US (occurrence: US)
  Receive Date: 20210326
  Receipt Date: 20210916
  Transmission Date: 20211014
  Serious: Yes (Hospitalization, Other)
  Sender: FDA-Public Use
  Company Number: NVSC2021US061994

PATIENT
  Age: 49 Year
  Sex: Female

DRUGS (5)
  1. GILENYA [Suspect]
     Active Substance: FINGOLIMOD HYDROCHLORIDE
     Indication: PRODUCT USED FOR UNKNOWN INDICATION
     Dosage: UNK
     Route: 065
  2. AUBAGIO [Suspect]
     Active Substance: TERIFLUNOMIDE
     Indication: PRODUCT USED FOR UNKNOWN INDICATION
     Dosage: UNK
     Route: 065
  3. KESIMPTA [Suspect]
     Active Substance: OFATUMUMAB
     Indication: MULTIPLE SCLEROSIS
     Dosage: 20 MG, QMO (SUBCUTANEOUS?BENEATH THE SKIN,USUALLY VIA INJECTION)
     Route: 058
     Dates: start: 20210126
  4. KESIMPTA [Suspect]
     Active Substance: OFATUMUMAB
     Dosage: 20 MG, QMO
     Route: 058
  5. KESIMPTA [Suspect]
     Active Substance: OFATUMUMAB
     Dosage: 0.4 ML, QMO (20MG/0.4ML)
     Route: 058

REACTIONS (25)
  - Amnesia [Not Recovered/Not Resolved]
  - Headache [Not Recovered/Not Resolved]
  - Dysphemia [Not Recovered/Not Resolved]
  - Multiple sclerosis [Unknown]
  - Paraesthesia [Unknown]
  - Liver disorder [Unknown]
  - Movement disorder [Unknown]
  - Pain [Not Recovered/Not Resolved]
  - Insomnia [Not Recovered/Not Resolved]
  - Eating disorder [Not Recovered/Not Resolved]
  - Hypoaesthesia [Unknown]
  - Asthenia [Unknown]
  - Pain in extremity [Unknown]
  - Arthralgia [Unknown]
  - Nervousness [Not Recovered/Not Resolved]
  - White blood cell count decreased [Unknown]
  - Therapeutic response shortened [Unknown]
  - Withdrawal syndrome [Not Recovered/Not Resolved]
  - Aspartate aminotransferase increased [Unknown]
  - Dysphagia [Unknown]
  - Drug ineffective [Unknown]
  - Limb discomfort [Unknown]
  - Neutrophil count increased [Unknown]
  - Gait disturbance [Unknown]
  - Fatigue [Unknown]

NARRATIVE: CASE EVENT DATE: 20210126
